FAERS Safety Report 8520962-0 (Version None)
Quarter: 2012Q3

REPORT INFORMATION
  Report Type: 
  Country: None (occurrence: None)
  Receive Date: 20120706
  Receipt Date: 20120621
  Transmission Date: 20120928
  Serious: Yes (Life-Threatening)
  Sender: FDA-Public Use
  Company Number: FK201201749

PATIENT
  Age: 62 Year
  Sex: Male

DRUGS (11)
  1. BISOPROLOL FUMARATE [Concomitant]
  2. ATORVASTATIN [Concomitant]
  3. DALTEPARIN SODIUM [Concomitant]
  4. ACETAMINOPHEN [Concomitant]
  5. RAMIPRIL [Concomitant]
  6. CO-AMOXICLAV (SPEKTRAMOX /02043401/) [Concomitant]
  7. OMEPRAZOLE [Concomitant]
  8. PIPERACILLIN AND TAZOBACTAM [Suspect]
     Indication: CHOLECYSTITIS
     Dosage: INTRAVENOUS (NOT OTHERWISE SPECIFIED)
     Route: 042
     Dates: start: 20120526, end: 20120526
  9. ASPIRIN [Concomitant]
  10. PRASUGREL (PRASUGREL) [Concomitant]
  11. CODEINE PHOSPHATE (CODEINE PHOSPHATE) [Concomitant]

REACTIONS (7)
  - LIP SWELLING [None]
  - HYPERTENSION [None]
  - MYOCARDIAL STRAIN [None]
  - SWOLLEN TONGUE [None]
  - PARAESTHESIA [None]
  - ELECTROCARDIOGRAM ST SEGMENT DEPRESSION [None]
  - HYPOTENSION [None]
